FAERS Safety Report 10286037 (Version 1)
Quarter: 2014Q3

REPORT INFORMATION
  Report Type: Spontaneous
  Country: US (occurrence: None)
  Receive Date: 20140703
  Receipt Date: 20140703
  Transmission Date: 20150326
  Serious: Yes (Hospitalization, Disabling)
  Sender: FDA-Public Use
  Company Number: US-H14001-14-00152

PATIENT
  Age: 66 Year
  Sex: Female

DRUGS (19)
  1. ATOVASTATIN (ATORVASTATIN) [Concomitant]
  2. FENTANYL (FENTANYL) [Concomitant]
     Active Substance: FENTANYL
  3. VITAMIN E [Concomitant]
     Active Substance: .ALPHA.-TOCOPHEROL
  4. KETOROLAC (KETOROLAC) [Suspect]
     Active Substance: KETOROLAC TROMETHAMINE
     Indication: MUSCLE SPASMS
     Route: 030
  5. SEROQUEL [Concomitant]
     Active Substance: QUETIAPINE FUMARATE
  6. KETOROLAC (KETOROLAC) [Suspect]
     Active Substance: KETOROLAC TROMETHAMINE
     Indication: INJECTION SITE PAIN
     Route: 030
  7. METHYLPREDNISOLONE ACETATE (METHYLPREDNISOLONE ACETATE) [Concomitant]
  8. LIDOCAINE (LIDOCAINE) [Concomitant]
     Active Substance: LIDOCAINE
  9. LEVOTHYROXINE (LEVOTHYROXINE) [Concomitant]
     Active Substance: LEVOTHYROXINE
  10. FLUOXETINE (FLUOXETINE) [Suspect]
     Active Substance: FLUOXETINE HYDROCHLORIDE
     Indication: PRODUCT USED FOR UNKNOWN INDICATION
     Route: 048
  11. CARVEDILOL (CARVEDILOL [Concomitant]
  12. GABAPENTIN (GABAPENTIN) [Concomitant]
     Active Substance: GABAPENTIN
  13. DOCUSATE (DOCUSATE) [Concomitant]
     Active Substance: DOCUSATE
  14. OMEPRAZOLE (OMEPRAZOLE) [Concomitant]
     Active Substance: OMEPRAZOLE
  15. SALINE (SODIUM CHLORIDE) [Concomitant]
  16. CARISOPRODOL (CARISOPRODOL) [Concomitant]
     Active Substance: CARISOPRODOL
  17. MULTIVITAMIN (VIGRAN) [Concomitant]
  18. FERROUS SULFATE [Concomitant]
     Active Substance: FERROUS SULFATE\FERROUS SULFATE, DRIED
  19. FISH OIL (FISH OIL) [Concomitant]
     Active Substance: FISH OIL

REACTIONS (9)
  - Quadriplegia [None]
  - Spinal cord compression [None]
  - Urinary incontinence [None]
  - Spontaneous haematoma [None]
  - Unresponsive to stimuli [None]
  - Spinal epidural haematoma [None]
  - Faecal incontinence [None]
  - Sensory loss [None]
  - Post procedural complication [None]
